FAERS Safety Report 22005679 (Version 1)
Quarter: 2023Q1

REPORT INFORMATION
  Report Type: Spontaneous
  Country: IN (occurrence: IN)
  Receive Date: 20230217
  Receipt Date: 20230217
  Transmission Date: 20230417
  Serious: Yes (Other)
  Sender: FDA-Public Use
  Company Number: IN-PFIZER INC-PV202300028436

PATIENT
  Age: 73 Year
  Sex: Female
  Weight: 59.3 kg

DRUGS (1)
  1. DACOMITINIB [Suspect]
     Active Substance: DACOMITINIB
     Dosage: 30 MG, 1X/DAY
     Route: 048
     Dates: start: 20220824, end: 20221119

REACTIONS (6)
  - Electrocardiogram QT prolonged [Unknown]
  - Blood pressure systolic increased [Unknown]
  - Mouth ulceration [Unknown]
  - Feeding disorder [Unknown]
  - Diarrhoea [Unknown]
  - Off label use [Unknown]

NARRATIVE: CASE EVENT DATE: 20220824
